FAERS Safety Report 14968660 (Version 1)
Quarter: 2018Q2

REPORT INFORMATION
  Report Type: Spontaneous
  Country: FI (occurrence: FI)
  Receive Date: 20180604
  Receipt Date: 20180604
  Transmission Date: 20180711
  Serious: Yes (Other)
  Sender: FDA-Public Use
  Company Number: FI-BAYER-2018-102561

PATIENT

DRUGS (1)
  1. JAYDESS [Suspect]
     Active Substance: LEVONORGESTREL

REACTIONS (4)
  - Scaphocephaly [None]
  - Hydrocephalus [None]
  - Rhabdomyoma [None]
  - Exposure during pregnancy [None]
